FAERS Safety Report 21925303 (Version 2)
Quarter: 2023Q1

REPORT INFORMATION
  Report Type: Spontaneous
  Country: US (occurrence: US)
  Receive Date: 20230130
  Receipt Date: 20230202
  Transmission Date: 20230418
  Serious: No
  Sender: FDA-Public Use
  Company Number: US-002147023-NVSC2023US017053

PATIENT
  Age: 81 Year
  Sex: Male

DRUGS (2)
  1. LEQVIO [Suspect]
     Active Substance: INCLISIRAN SODIUM
     Indication: Low density lipoprotein increased
     Dosage: 284 MG, OTHER
     Route: 058
     Dates: start: 20220923
  2. LEQVIO [Suspect]
     Active Substance: INCLISIRAN SODIUM
     Dosage: UNK (1ST AND 2ND DOSES OF LEQVIO WERE GIVEN)
     Route: 065

REACTIONS (1)
  - Low density lipoprotein increased [Not Recovered/Not Resolved]
